FAERS Safety Report 7060539-X (Version None)
Quarter: 2010Q4

REPORT INFORMATION
  Report Type: 
  Country: None (occurrence: None)
  Receive Date: 20101025
  Receipt Date: 20101012
  Transmission Date: 20110411
  Serious: Yes (Other)
  Sender: FDA-Public Use
  Company Number: US-ELI_LILLY_AND_COMPANY-US201010003083

PATIENT
  Sex: Female

DRUGS (1)
  1. FORTEO [Suspect]
     Indication: OSTEOPOROSIS
     Dosage: 20 UG, DAILY (1/D)
     Dates: start: 20100914, end: 20100930

REACTIONS (7)
  - AMNESIA [None]
  - CONFUSIONAL STATE [None]
  - FEELING ABNORMAL [None]
  - MALAISE [None]
  - MUSCLE FATIGUE [None]
  - SLEEP DISORDER [None]
  - THINKING ABNORMAL [None]
